FAERS Safety Report 7555860-2 (Version None)
Quarter: 2011Q2

REPORT INFORMATION
  Report Type: 
  Country: None (occurrence: None)
  Receive Date: 20110618
  Receipt Date: 20110606
  Transmission Date: 20111010
  Serious: Yes (Other)
  Sender: FDA-Public Use
  Company Number: US-BAYER-2011-049263

PATIENT
  Age: 42 Year
  Sex: Female

DRUGS (1)
  1. MAGNEVIST [Suspect]
     Indication: NUCLEAR MAGNETIC RESONANCE IMAGING
     Dosage: UNK
     Dates: start: 20110318, end: 20110318

REACTIONS (8)
  - INJECTION SITE PAIN [None]
  - BURNING SENSATION [None]
  - RASH PAPULAR [None]
  - LIMB DISCOMFORT [None]
  - PRURITUS [None]
  - JOINT STIFFNESS [None]
  - JOINT SWELLING [None]
  - THROMBOPHLEBITIS [None]
